FAERS Safety Report 8049717 (Version 4)
Quarter: 2012Q4

REPORT INFORMATION
  Report Type: 
  Country: US (occurrence: US)
  Receive Date: 20110722
  Receipt Date: 20121220
  Transmission Date: 20130627
  Serious: Yes (Other)
  Sender: FDA-Public Use
  Company Number: US-ROCHE-791246

PATIENT
  Sex: Female

DRUGS (2)
  1. ACCUTANE [Suspect]
     Indication: ACNE
     Dosage: FORM: PILLS
     Route: 048
  2. ACCUTANE [Suspect]
     Indication: ACNE

REACTIONS (2)
  - Injury [Unknown]
  - Depression [Unknown]
